FAERS Safety Report 6039285-7 (Version None)
Quarter: 2009Q1

REPORT INFORMATION
  Report Type: 
  Country: None (occurrence: None)
  Receive Date: 20090115
  Receipt Date: 20090112
  Transmission Date: 20090719
  Serious: Yes (Life-Threatening, Hospitalization, Other)
  Sender: FDA-Public Use
  Company Number: PHBS2009IT00443

PATIENT
  Age: 60 Year
  Sex: Male

DRUGS (11)
  1. CYCLOSPORINE [Suspect]
     Indication: HEART TRANSPLANT
     Dosage: 175 MG/DAY
  2. COLCHICINE [Interacting]
     Indication: GOUT
  3. DARBEPOETIN ALFA [Concomitant]
  4. CLONIDINE [Concomitant]
  5. AMLODIPINE [Concomitant]
  6. CLOPIDOGREL [Concomitant]
  7. LANSOPRAZOLE [Concomitant]
  8. FUROSEMIDE [Concomitant]
  9. RAMIPRIL [Concomitant]
  10. METHYLDOPA [Concomitant]
  11. SULFINPYRAZONE [Concomitant]

REACTIONS (33)
  - ARRHYTHMIA [None]
  - ARRHYTHMIA SUPRAVENTRICULAR [None]
  - ARTHRALGIA [None]
  - ASTHENIA [None]
  - BUNDLE BRANCH BLOCK BILATERAL [None]
  - CARDIOTOXICITY [None]
  - DIALYSIS [None]
  - DIARRHOEA [None]
  - DRUG TOXICITY [None]
  - DYSPNOEA [None]
  - EJECTION FRACTION DECREASED [None]
  - ELECTROCARDIOGRAM ST SEGMENT DEPRESSION [None]
  - GOUT [None]
  - HEPATIC ENZYME INCREASED [None]
  - HYPERPHOSPHATAEMIA [None]
  - HYPOCALCAEMIA [None]
  - IMMUNOSUPPRESSANT DRUG LEVEL INCREASED [None]
  - INFECTION [None]
  - LIVER INJURY [None]
  - LUNG INFILTRATION [None]
  - MULTI-ORGAN FAILURE [None]
  - MYALGIA [None]
  - NEUTROPENIA [None]
  - OXYGEN SATURATION DECREASED [None]
  - PNEUMONIA [None]
  - POLYNEUROPATHY [None]
  - PYREXIA [None]
  - RENAL FAILURE CHRONIC [None]
  - RHABDOMYOLYSIS [None]
  - STAPHYLOCOCCAL SEPSIS [None]
  - SUPRAVENTRICULAR TACHYCARDIA [None]
  - TROPONIN I INCREASED [None]
  - VOMITING [None]
